FAERS Safety Report 6671993-7 (Version None)
Quarter: 2010Q2

REPORT INFORMATION
  Report Type: 
  Country: None (occurrence: None)
  Receive Date: 20100405
  Receipt Date: 20100323
  Transmission Date: 20101027
  Serious: Yes (Death, Other)
  Sender: FDA-Public Use
  Company Number: MC201000104

PATIENT

DRUGS (9)
  1. ANGIOMAX [Suspect]
  2. ASPIRIN [Concomitant]
  3. CLOPIDOGREL [Concomitant]
  4. BETA BLOCKING AGENTS [Concomitant]
  5. ACE INHIBITOR NOS [Concomitant]
  6. ANGIOTENSIN II ANTAGONISTS [Concomitant]
  7. NITRATES [Concomitant]
  8. CALCIUM CHANNEL BLOCKERS [Concomitant]
  9. STATIN (TIABENDAZOLE) [Concomitant]

REACTIONS (5)
  - CARDIAC DEATH [None]
  - CORONARY ARTERY RESTENOSIS [None]
  - DEVICE OCCLUSION [None]
  - MYOCARDIAL INFARCTION [None]
  - THROMBOSIS IN DEVICE [None]
